FAERS Safety Report 5962439-2 (Version None)
Quarter: 2008Q4

REPORT INFORMATION
  Report Type: 
  Country: None (occurrence: None)
  Receive Date: 20081121
  Receipt Date: 20081113
  Transmission Date: 20090506
  Serious: Yes (Other)
  Sender: FDA-Public Use
  Company Number: BR-PFIZER INC-2008019341

PATIENT
  Sex: Male
  Weight: 55 kg

DRUGS (4)
  1. LIPITOR [Suspect]
     Indication: SURGERY
     Route: 048
     Dates: start: 20071213
  2. LIPITOR [Suspect]
     Indication: BLOOD CHOLESTEROL
  3. AMLODIPINE [Concomitant]
  4. ATENOLOL [Concomitant]

REACTIONS (8)
  - DIZZINESS [None]
  - DRY EYE [None]
  - DYSPNOEA [None]
  - HYPERHIDROSIS [None]
  - LABYRINTHITIS [None]
  - MALAISE [None]
  - PERIPHERAL COLDNESS [None]
  - WEIGHT DECREASED [None]
